FAERS Safety Report 18661011 (Version 2)
Quarter: 2021Q3

REPORT INFORMATION
  Report Type: Spontaneous
  Country: US (occurrence: US)
  Receive Date: 20201224
  Receipt Date: 20210908
  Transmission Date: 20211014
  Serious: No
  Sender: FDA-Public Use
  Company Number: US-PFIZER INC-2020509742

PATIENT
  Age: 52 Year
  Sex: Female

DRUGS (1)
  1. SOMAVERT [Suspect]
     Active Substance: PEGVISOMANT
     Indication: ACROMEGALY
     Dosage: 10 MG, 1X/DAY
     Route: 058
     Dates: start: 20201201, end: 20210510

REACTIONS (5)
  - Fatigue [Unknown]
  - Pruritus [Unknown]
  - Nausea [Unknown]
  - Hepatic enzyme increased [Not Recovered/Not Resolved]
  - Pain [Unknown]
